FAERS Safety Report 4417895-8 (Version None)
Quarter: 2004Q3

REPORT INFORMATION
  Report Type: 
  Country: None (occurrence: None)
  Receive Date: 20040803
  Receipt Date: 20040722
  Transmission Date: 20050211
  Serious: Yes (Other)
  Sender: FDA-Public Use
  Company Number: 2004225113JP

PATIENT
  Age: 78 Year
  Sex: Male

DRUGS (4)
  1. XALATAN [Suspect]
     Indication: INTRAOCULAR PRESSURE INCREASED
     Dosage: 1 GTT,QD, OPHTHALMIC
     Route: 047
     Dates: start: 20010214, end: 20010227
  2. TIMOPTIC [Concomitant]
  3. RESCULA (UNOPROSTONE ISOPROPYLESTER) [Concomitant]
  4. TRYSIOT [Concomitant]

REACTIONS (1)
  - INTRAOCULAR PRESSURE INCREASED [None]
